FAERS Safety Report 5132675-6 (Version None)
Quarter: 2006Q4

REPORT INFORMATION
  Report Type: 
  Country: None (occurrence: None)
  Receive Date: 20061017
  Receipt Date: 20061002
  Transmission Date: 20070319
  Serious: Yes (Death)
  Sender: FDA-Public Use
  Company Number: 2006JP001847

PATIENT
  Age: 34 Year
  Sex: Female

DRUGS (1)
  1. PROGRAF [Suspect]
     Indication: BONE MARROW TRANSPLANT

REACTIONS (1)
  - THROMBOTIC MICROANGIOPATHY [None]
